FAERS Safety Report 10412020 (Version 1)
Quarter: 2014Q3

REPORT INFORMATION
  Report Type: Spontaneous
  Country: US (occurrence: None)
  Receive Date: 20140826
  Receipt Date: 20140826
  Transmission Date: 20150326
  Serious: Yes (Hospitalization)
  Sender: FDA-Public Use
  Company Number: None

PATIENT
  Age: 61 Year
  Sex: Female
  Weight: 87.3 kg

DRUGS (9)
  1. GLIPIZIDE. [Concomitant]
     Active Substance: GLIPIZIDE
  2. SIMEPREVIR [Suspect]
     Active Substance: SIMEPREVIR
     Indication: CHRONIC HEPATITIS C
     Route: 048
     Dates: start: 20140401, end: 20140629
  3. SOFOSBUVIR [Suspect]
     Active Substance: SOFOSBUVIR
     Route: 048
  4. DIOVAN [Concomitant]
     Active Substance: VALSARTAN
  5. FERROUS SULFATE [Concomitant]
     Active Substance: FERROUS SULFATE\FERROUS SULFATE, DRIED
  6. VITAMIN D [Concomitant]
     Active Substance: CHOLECALCIFEROL
  7. GLICLAZIDE [Concomitant]
     Active Substance: GLICLAZIDE
  8. CIPROFLOXACIN. [Concomitant]
     Active Substance: CIPROFLOXACIN
  9. PROPRANOLOL [Concomitant]
     Active Substance: PROPRANOLOL\PROPRANOLOL HYDROCHLORIDE

REACTIONS (6)
  - Haematemesis [None]
  - Melaena [None]
  - Oesophageal varices haemorrhage [None]
  - Thrombocytopenia [None]
  - Anaemia [None]
  - Portal hypertensive gastropathy [None]

NARRATIVE: CASE EVENT DATE: 20140531
